FAERS Safety Report 24570773 (Version 5)
Quarter: 2025Q1

REPORT INFORMATION
  Report Type: Report from Study
  Country: US (occurrence: US)
  Receive Date: 20241101
  Receipt Date: 20250313
  Transmission Date: 20250409
  Serious: No
  Sender: ACADIA PHARMACEUTICALS
  Company Number: US-ACADIA PHARMACEUTICALS INC.-ACA-2024-TRF-006439

PATIENT

DRUGS (8)
  1. DAYBUE [Suspect]
     Active Substance: TROFINETIDE
     Indication: Rett syndrome
     Dosage: 10 MILLILITER, BID
     Route: 048
     Dates: start: 202407
  2. DAYBUE [Suspect]
     Active Substance: TROFINETIDE
     Dosage: 15 MILLILITER, BID
     Route: 048
  3. DAYBUE [Suspect]
     Active Substance: TROFINETIDE
     Dosage: 10 MILLILITER, BID
     Route: 048
  4. DAYBUE [Suspect]
     Active Substance: TROFINETIDE
     Dosage: 15 MILLILITER, BID
     Route: 048
  5. DAYBUE [Suspect]
     Active Substance: TROFINETIDE
     Dosage: 15 MILLILITER, BID
     Route: 048
  6. KEPPRA [Concomitant]
     Active Substance: LEVETIRACETAM
  7. DEPAKOTE [Concomitant]
     Active Substance: DIVALPROEX SODIUM
  8. VITAMINS NOS [Concomitant]
     Active Substance: VITAMINS

REACTIONS (10)
  - Faeces soft [Recovered/Resolved]
  - Vomiting [Not Recovered/Not Resolved]
  - Diarrhoea [Not Recovered/Not Resolved]
  - Malaise [Not Recovered/Not Resolved]
  - Influenza [Recovering/Resolving]
  - Refusal of treatment by patient [Unknown]
  - Nasopharyngitis [Unknown]
  - Therapy interrupted [Not Recovered/Not Resolved]
  - Intentional dose omission [Unknown]
  - Underdose [Unknown]

NARRATIVE: CASE EVENT DATE: 20241101
